FAERS Safety Report 20080860 (Version 1)
Quarter: 2021Q4

REPORT INFORMATION
  Report Type: Spontaneous
  Country: US (occurrence: None)
  Receive Date: 20211116
  Receipt Date: 20211116
  Transmission Date: 20220303
  Serious: No
  Sender: FDA-Public Use
  Company Number: None

PATIENT
  Age: 49 Year
  Sex: Female
  Weight: 73.48 kg

DRUGS (3)
  1. RINVOQ [Suspect]
     Active Substance: UPADACITINIB
     Indication: Rheumatoid arthritis
     Dosage: FREQUENCY : DAILY;?
     Route: 048
     Dates: start: 202009
  2. RINVOQ [Suspect]
     Active Substance: UPADACITINIB
     Indication: Torticollis
  3. RINVOQ [Suspect]
     Active Substance: UPADACITINIB
     Indication: Migraine

REACTIONS (1)
  - Infection [None]
